FAERS Safety Report 9615107 (Version 2)
Quarter: 2013Q4

REPORT INFORMATION
  Report Type: Spontaneous
  Country: US (occurrence: US)
  Receive Date: 20131011
  Receipt Date: 20131113
  Transmission Date: 20140711
  Serious: No
  Sender: FDA-Public Use
  Company Number: US-PFIZER INC-2013289792

PATIENT
  Age: 50 Year
  Sex: Female
  Weight: 63.5 kg

DRUGS (1)
  1. EFFEXOR XR [Suspect]
     Indication: DEPRESSION
     Dosage: UNK

REACTIONS (4)
  - Drug withdrawal syndrome [Unknown]
  - Headache [Unknown]
  - Vision blurred [Unknown]
  - Gastrointestinal disorder [Unknown]
